FAERS Safety Report 5096026-8 (Version None)
Quarter: 2006Q3

REPORT INFORMATION
  Report Type: 
  Country: None (occurrence: None)
  Receive Date: 20060905
  Receipt Date: 20050221
  Transmission Date: 20061208
  Serious: Yes (Other)
  Sender: FDA-Public Use
  Company Number: DE-GLAXOSMITHKLINE-D0046006A

PATIENT
  Age: 70 Year
  Sex: Male
  Weight: 102 kg

DRUGS (1)
  1. AVODART [Suspect]
     Route: 048

REACTIONS (8)
  - ANGINA PECTORIS [None]
  - HYPERTENSION [None]
  - INCREASED APPETITE [None]
  - INITIAL INSOMNIA [None]
  - MIDDLE INSOMNIA [None]
  - RESTLESSNESS [None]
  - TACHYCARDIA [None]
  - WEIGHT INCREASED [None]
